FAERS Safety Report 24374975 (Version 1)
Quarter: 2024Q3

REPORT INFORMATION
  Report Type: Spontaneous
  Country: GB (occurrence: GB)
  Receive Date: 20240927
  Receipt Date: 20240927
  Transmission Date: 20241016
  Serious: Yes (Life-Threatening, Other)
  Sender: MERCK
  Company Number: None

PATIENT
  Age: 52 Year
  Sex: Male
  Weight: 70 kg

DRUGS (6)
  1. SUGAMMADEX SODIUM [Suspect]
     Active Substance: SUGAMMADEX SODIUM
     Indication: Ill-defined disorder
     Dosage: STRENGTH: 200MG/2ML
  2. BRAVIA [Concomitant]
     Indication: Ill-defined disorder
     Dosage: USE AS DIRECTED
     Dates: start: 20230403
  3. BRAVIA [Concomitant]
     Dosage: USE AS DIRECTED
     Dates: start: 20240105
  4. LOPERAMIDE [Concomitant]
     Active Substance: LOPERAMIDE
     Indication: Ill-defined disorder
     Dosage: USE AS DIRECTED BY THE STOMA TEAM
     Dates: start: 20230516
  5. SALT [Concomitant]
     Active Substance: SODIUM CHLORIDE
     Indication: Ill-defined disorder
     Dosage: USE AS DIRECTED
     Dates: start: 20240105
  6. SENSUR [Concomitant]
     Indication: Ill-defined disorder
     Dosage: USE AS DIRECTED
     Dates: start: 20240105

REACTIONS (1)
  - Respiratory arrest [Recovered/Resolved]
